FAERS Safety Report 8884494 (Version 2)
Quarter: 2013Q2

REPORT INFORMATION
  Report Type: Spontaneous
  Country: US (occurrence: US)
  Receive Date: 20121102
  Receipt Date: 20130515
  Transmission Date: 20140414
  Serious: No
  Sender: FDA-Public Use
  Company Number: US-ASTRAZENECA-2012SE17986

PATIENT
  Age: 62 Year
  Sex: Female

DRUGS (5)
  1. CRESTOR [Suspect]
     Route: 048
     Dates: start: 20120223
  2. LISINOPRIL [Suspect]
     Route: 065
  3. ATACAND HCT [Concomitant]
     Dosage: 32-12.5 MG, TAKE ONE TABLET EVERYDAY
     Route: 048
     Dates: start: 20120223
  4. KOMBIGLYZE XR [Concomitant]
     Dosage: 2.5 - 1000 MG, ONE TABLET ONCE DAILY
     Route: 048
     Dates: start: 20120223
  5. JANUMET [Concomitant]
     Dosage: 50/1000MG

REACTIONS (8)
  - Anxiety [Unknown]
  - Dyslipidaemia [Unknown]
  - Hypertension [Unknown]
  - Cough [Unknown]
  - Drug intolerance [Unknown]
  - Diabetes mellitus [Unknown]
  - Depression [Unknown]
  - Drug hypersensitivity [Unknown]
